FAERS Safety Report 6714172-7 (Version None)
Quarter: 2010Q2

REPORT INFORMATION
  Report Type: 
  Country: None (occurrence: None)
  Receive Date: 20100506
  Receipt Date: 20100504
  Transmission Date: 20101027
  Serious: Yes (Life-Threatening, Hospitalization)
  Sender: FDA-Public Use
  Company Number: FR-ROCHE-685638

PATIENT
  Sex: Female
  Weight: 61 kg

DRUGS (3)
  1. BEVACIZUMAB [Suspect]
     Indication: COLORECTAL CANCER
     Dosage: LAST DOSE PRIOR TO SAE: 4 JAN 2010.
     Route: 042
     Dates: start: 20091207
  2. FLUOROURACIL [Suspect]
     Indication: COLORECTAL CANCER
     Dosage: FREQUENCY: CONTINOUS SINCE MONDAY TO FRIDAY
     Route: 042
     Dates: start: 20091221
  3. TRIATEC [Concomitant]
     Dates: start: 20090907

REACTIONS (1)
  - RUPTURED CEREBRAL ANEURYSM [None]
